FAERS Safety Report 6775002-0 (Version None)
Quarter: 2010Q2

REPORT INFORMATION
  Report Type: 
  Country: None (occurrence: None)
  Receive Date: 20100617
  Receipt Date: 20100609
  Transmission Date: 20101027
  Serious: Yes (Hospitalization)
  Sender: FDA-Public Use
  Company Number: A0864022A

PATIENT
  Age: 62 Year
  Sex: Female

DRUGS (3)
  1. ADVAIR DISKUS 100/50 [Suspect]
     Indication: CHRONIC OBSTRUCTIVE PULMONARY DISEASE
     Dosage: 1PUFF TWICE PER DAY
     Route: 055
     Dates: start: 20091215
  2. ALBUTEROL [Concomitant]
  3. ATROVENT [Concomitant]

REACTIONS (3)
  - ADVERSE DRUG REACTION [None]
  - PNEUMONIA [None]
  - TREATMENT NONCOMPLIANCE [None]
